FAERS Safety Report 5651591-4 (Version None)
Quarter: 2008Q1

REPORT INFORMATION
  Report Type: 
  Country: None (occurrence: None)
  Receive Date: 20080131
  Receipt Date: 20071102
  Transmission Date: 20080703
  Serious: No
  Sender: FDA-Public Use
  Company Number: US200710003930

PATIENT
  Age: 42 Year
  Sex: Female

DRUGS (4)
  1. BYETTA [Suspect]
     Indication: HYPOGLYCAEMIA
     Dosage: 5 UG, 2/D, PARENTERAL ; 10 UG, 2/D, PARENTERAL
     Route: 051
     Dates: start: 20070501, end: 20070601
  2. BYETTA [Suspect]
     Indication: HYPOGLYCAEMIA
     Dosage: 5 UG, 2/D, PARENTERAL ; 10 UG, 2/D, PARENTERAL
     Route: 051
     Dates: start: 20070601, end: 20070801
  3. WELLBUTRIN [Concomitant]
  4. METFORMIN HCL [Concomitant]

REACTIONS (2)
  - SPEECH DISORDER [None]
  - VERBIGERATION [None]
